FAERS Safety Report 11153107 (Version 2)
Quarter: 2015Q3

REPORT INFORMATION
  Report Type: Spontaneous
  Country: US (occurrence: US)
  Receive Date: 20150601
  Receipt Date: 20150811
  Transmission Date: 20151125
  Serious: Yes (Hospitalization, Other)
  Sender: FDA-Public Use
  Company Number: US-GLAXOSMITHKLINE-US2015074004

PATIENT
  Sex: Female

DRUGS (12)
  1. SINGULAIR [Concomitant]
     Active Substance: MONTELUKAST SODIUM
  2. XOLAIR [Concomitant]
     Active Substance: OMALIZUMAB
  3. PREDNISONE. [Concomitant]
     Active Substance: PREDNISONE
  4. ADVAIR HFA [Suspect]
     Active Substance: FLUTICASONE PROPIONATE\SALMETEROL XINAFOATE
     Indication: PRODUCT USED FOR UNKNOWN INDICATION
     Dosage: UNK
     Dates: start: 2002
  5. DUONEB [Concomitant]
     Active Substance: ALBUTEROL SULFATE\IPRATROPIUM BROMIDE
  6. FLUTICASONE [Concomitant]
     Active Substance: FLUTICASONE\FLUTICASONE PROPIONATE
  7. PROVENTIL HFA [Suspect]
     Active Substance: ALBUTEROL SULFATE
     Indication: ASTHMA
  8. VENTOLIN HFA [Suspect]
     Active Substance: ALBUTEROL SULFATE
     Indication: ASTHMA
  9. METFORMIN HYDROCHLORIDE. [Concomitant]
     Active Substance: METFORMIN HYDROCHLORIDE
  10. ALBUTEROL SULFATE. [Suspect]
     Active Substance: ALBUTEROL SULFATE
     Indication: ASTHMA
  11. PROAIR HFA [Suspect]
     Active Substance: ALBUTEROL SULFATE
     Indication: PRODUCT USED FOR UNKNOWN INDICATION
  12. ZYRTEC [Concomitant]
     Active Substance: CETIRIZINE HYDROCHLORIDE

REACTIONS (9)
  - Pneumonia [Unknown]
  - Eye disorder [Not Recovered/Not Resolved]
  - Disability [Not Recovered/Not Resolved]
  - Asthma [Unknown]
  - Eye pain [Not Recovered/Not Resolved]
  - Decreased activity [Not Recovered/Not Resolved]
  - Malaise [Not Recovered/Not Resolved]
  - Impaired work ability [Not Recovered/Not Resolved]
  - Blindness [Not Recovered/Not Resolved]
